FAERS Safety Report 4848905-1 (Version None)
Quarter: 2005Q4

REPORT INFORMATION
  Report Type: 
  Country: None (occurrence: None)
  Receive Date: 20051121
  Receipt Date: 20041019
  Transmission Date: 20060501
  Serious: Yes (Hospitalization)
  Sender: FDA-Public Use
  Company Number: 20041000460

PATIENT
  Age: 13 Year
  Sex: Male
  Weight: 44 kg

DRUGS (4)
  1. SUPRANE [Suspect]
     Indication: ANAESTHESIA
     Dosage: IH
     Route: 055
     Dates: start: 20040623, end: 20040623
  2. FENTANYL [Concomitant]
  3. ONDANSETRON [Concomitant]
  4. LIDOCAINE W/ EPINEPHRINE [Concomitant]

REACTIONS (1)
  - VOMITING [None]
